FAERS Safety Report 6911047-5 (Version None)
Quarter: 2010Q3

REPORT INFORMATION
  Report Type: 
  Country: None (occurrence: None)
  Receive Date: 20100806
  Receipt Date: 20100729
  Transmission Date: 20110219
  Serious: Yes (Hospitalization)
  Sender: FDA-Public Use
  Company Number: B0667593A

PATIENT
  Age: 67 Year
  Sex: Female

DRUGS (4)
  1. ZOPHREN [Suspect]
     Indication: PRODUCT USED FOR UNKNOWN INDICATION
     Route: 065
     Dates: start: 20100520, end: 20100528
  2. BELUSTINE [Suspect]
     Indication: CHEMOTHERAPY
     Route: 048
     Dates: start: 20100520, end: 20100525
  3. CYTARABINE [Suspect]
     Indication: CHEMOTHERAPY
     Route: 042
     Dates: start: 20100520, end: 20100526
  4. ZAVEDOS [Suspect]
     Indication: CHEMOTHERAPY
     Route: 042
     Dates: start: 20100520, end: 20100524

REACTIONS (8)
  - DIARRHOEA [None]
  - FEELING HOT [None]
  - HYPOTENSION [None]
  - MALAISE [None]
  - PRURITUS [None]
  - PYREXIA [None]
  - RASH MACULO-PAPULAR [None]
  - RASH VESICULAR [None]
